FAERS Safety Report 17469646 (Version 1)
Quarter: 2020Q1

REPORT INFORMATION
  Report Type: Spontaneous
  Country: ES (occurrence: ES)
  Receive Date: 20200227
  Receipt Date: 20200227
  Transmission Date: 20200409
  Serious: Yes (Other)
  Sender: FDA-Public Use
  Company Number: ES-STALLERGENES SAS-2081023

PATIENT
  Age: 9 Year
  Sex: Female

DRUGS (1)
  1. ORALAIR [Suspect]
     Active Substance: ANTHOXANTHUM ODORATUM POLLEN\DACTYLIS GLOMERATA POLLEN\LOLIUM PERENNE POLLEN\PHLEUM PRATENSE POLLEN\POA PRATENSIS POLLEN
     Indication: CONJUNCTIVITIS ALLERGIC
     Route: 060

REACTIONS (7)
  - Angioedema [Recovering/Resolving]
  - Rash pruritic [Recovering/Resolving]
  - Oedema mouth [Recovering/Resolving]
  - Erythema [Recovering/Resolving]
  - Pityriasis rosea [Recovering/Resolving]
  - Cough [Recovering/Resolving]
  - Rhinitis [Recovering/Resolving]
